FAERS Safety Report 6435662-0 (Version None)
Quarter: 2009Q4

REPORT INFORMATION
  Report Type: 
  Country: None (occurrence: None)
  Receive Date: 20091110
  Receipt Date: 20080414
  Transmission Date: 20100525
  Serious: No
  Sender: FDA-Public Use
  Company Number: AECAN200800094

PATIENT
  Age: 66 Year
  Sex: Male

DRUGS (2)
  1. GAMUNEX [Suspect]
     Indication: MILLER FISHER SYNDROME
     Dosage: ; TOTAL; IV
     Route: 042
     Dates: start: 20071212, end: 20071215
  2. GAMUNEX [Suspect]
     Indication: MILLER FISHER SYNDROME
     Dosage: ; IV
     Route: 042
     Dates: start: 20071212, end: 20071215

REACTIONS (1)
  - HAEMOLYTIC ANAEMIA [None]
